FAERS Safety Report 18746726 (Version 1)
Quarter: 2021Q1

REPORT INFORMATION
  Report Type: Spontaneous
  Country: US (occurrence: US)
  Receive Date: 20210115
  Receipt Date: 20210115
  Transmission Date: 20210419
  Serious: No
  Sender: FDA-Public Use
  Company Number: US-PFIZER INC-2019451345

PATIENT
  Age: 74 Year
  Sex: Male

DRUGS (2)
  1. SUTENT [Suspect]
     Active Substance: SUNITINIB MALATE
     Indication: RENAL CANCER
     Dosage: 37.5 MG, CYCLIC (12.5 MG TAKE 3 CAPSULES DAILY, DAYS 1?14, EVERY 21 DAYS)
  2. SUTENT [Suspect]
     Active Substance: SUNITINIB MALATE
     Dosage: 37.5 MG, CYCLIC [TAKE 3 TABLETS (37.5 MG TOTAL) DAILY FOR 14DAYS ON AND 7DAYS OFF EVRY 21?DAY CYCLE]
     Dates: start: 20161213

REACTIONS (2)
  - Diarrhoea [Unknown]
  - Joint swelling [Unknown]

NARRATIVE: CASE EVENT DATE: 20170314
